FAERS Safety Report 4932907-0 (Version None)
Quarter: 2006Q1

REPORT INFORMATION
  Report Type: 
  Country: None (occurrence: None)
  Receive Date: 20060306
  Receipt Date: 20060301
  Transmission Date: 20060701
  Serious: Yes (Life-Threatening, Hospitalization)
  Sender: FDA-Public Use
  Company Number: PHBS2006JP03358

PATIENT
  Age: 77 Year
  Sex: Male

DRUGS (2)
  1. GLEEVEC [Suspect]
     Indication: CHRONIC MYELOID LEUKAEMIA
     Dosage: 400 MG/D
     Route: 048
     Dates: start: 20060223
  2. ANTIPLATELET AGENTS [Concomitant]

REACTIONS (4)
  - ANEURYSM [None]
  - HAEMATEMESIS [None]
  - SMALL INTESTINAL HAEMORRHAGE [None]
  - SURGERY [None]
